FAERS Safety Report 9386338 (Version 5)
Quarter: 2013Q4

REPORT INFORMATION
  Report Type: Spontaneous
  Country: US (occurrence: US)
  Receive Date: 20130708
  Receipt Date: 20131028
  Transmission Date: 20140711
  Serious: Yes (Hospitalization)
  Sender: FDA-Public Use
  Company Number: US-BIOGENIDEC-2013BI058265

PATIENT
  Age: 34 Year
  Sex: Female
  Weight: 104 kg

DRUGS (7)
  1. TYSABRI [Suspect]
     Indication: MULTIPLE SCLEROSIS
     Route: 042
     Dates: start: 20080714, end: 20130520
  2. DEPAKOTE [Concomitant]
  3. BACLOFEN [Concomitant]
  4. VITAMIN D [Concomitant]
  5. PERCOCET [Concomitant]
     Indication: PAIN
  6. AMRIX [Concomitant]
     Route: 048
  7. FLEXERIL [Concomitant]
     Route: 048

REACTIONS (4)
  - Progressive multifocal leukoencephalopathy [Unknown]
  - Multiple sclerosis relapse [Not Recovered/Not Resolved]
  - Back pain [Unknown]
  - Muscle spasms [Unknown]
